FAERS Safety Report 4867661-4 (Version None)
Quarter: 2005Q4

REPORT INFORMATION
  Report Type: 
  Country: None (occurrence: None)
  Receive Date: 20051222
  Receipt Date: 20020208
  Transmission Date: 20060501
  Serious: Yes (Hospitalization)
  Sender: FDA-Public Use
  Company Number: HQ0438212JAN2000

PATIENT
  Age: 75 Year
  Sex: Male

DRUGS (2)
  1. MYLOTARG [Suspect]
     Indication: ACUTE MYELOID LEUKAEMIA
     Dosage: 9 MG/M^2 1X PER 1 DOS, INTRAVENOUS
     Route: 042
     Dates: start: 19991216, end: 19991216
  2. MYLOTARG [Suspect]
     Indication: ACUTE MYELOID LEUKAEMIA
     Dosage: 9 MG/M^2 1X PER 1 DOS, INTRAVENOUS
     Route: 042
     Dates: start: 20000105, end: 20000105

REACTIONS (10)
  - CHILLS [None]
  - FEBRILE NEUTROPENIA [None]
  - HYPERTENSION [None]
  - INFUSION RELATED REACTION [None]
  - LEUKOPENIA [None]
  - NAUSEA [None]
  - ORTHOSTATIC HYPOTENSION [None]
  - PANCYTOPENIA [None]
  - PYREXIA [None]
  - VOMITING [None]
